FAERS Safety Report 6487429-5 (Version None)
Quarter: 2009Q4

REPORT INFORMATION
  Report Type: 
  Country: None (occurrence: None)
  Receive Date: 20091123
  Receipt Date: 20090923
  Transmission Date: 20100525
  Serious: No
  Sender: FDA-Public Use
  Company Number: 8052618

PATIENT
  Age: 77 Year
  Sex: Female
  Weight: 66.3 kg

DRUGS (16)
  1. CIMZIA [Suspect]
     Indication: CROHN'S DISEASE
     Dosage: 400 MG SC
     Route: 058
     Dates: start: 20090610
  2. CIMZIA [Suspect]
     Indication: RHEUMATOID ARTHRITIS
     Dosage: 400 MG SC
     Route: 058
     Dates: start: 20090610
  3. METHOTREXATE [Concomitant]
  4. SULFASALAZINE [Concomitant]
  5. ALTACE [Concomitant]
  6. HYDROCHLOROTHIAZIDE [Concomitant]
  7. CLIMARA [Concomitant]
  8. NEXIUM [Concomitant]
  9. RANITIDINE [Concomitant]
  10. DAILY MULTIVITAMIN [Concomitant]
  11. LOVAZA [Concomitant]
  12. VITAMIN B-12 [Concomitant]
  13. FERROUS GLUCONATE [Concomitant]
  14. TYLENOL (CAPLET) [Concomitant]
  15. FLONASE [Concomitant]
  16. CLINDAMYCIN [Concomitant]

REACTIONS (2)
  - RASH [None]
  - SWELLING [None]
